FAERS Safety Report 5989933-2 (Version None)
Quarter: 2008Q4

REPORT INFORMATION
  Report Type: 
  Country: None (occurrence: None)
  Receive Date: 20081211
  Receipt Date: 20081202
  Transmission Date: 20090506
  Serious: Yes (Other)
  Sender: FDA-Public Use
  Company Number: CA-RANBAXY-2008RR-19723

PATIENT
  Age: 22 Month
  Sex: Female

DRUGS (8)
  1. CAPTOPRIL [Suspect]
     Dosage: 10 MG, TID
  2. CARVEDILOL [Suspect]
     Dosage: 4.5 MG, BID
  3. REMIFENTANIL [Suspect]
     Indication: ANAESTHESIA
     Dosage: 1 UG/KG, UNK
  4. SEVOFLURANE [Suspect]
     Indication: ANAESTHESIA
     Route: 055
  5. MIDAZOLAM HCL [Concomitant]
  6. FENTANYL-100 [Concomitant]
     Indication: ANAESTHESIA
  7. KETAMINE HCL [Concomitant]
     Indication: ANAESTHESIA
  8. ACETAMINOPHEN [Concomitant]

REACTIONS (1)
  - CIRCULATORY COLLAPSE [None]
